FAERS Safety Report 4455876-9 (Version None)
Quarter: 2004Q3

REPORT INFORMATION
  Report Type: 
  Country: None (occurrence: None)
  Receive Date: 20040920
  Receipt Date: 20040902
  Transmission Date: 20050211
  Serious: Yes (Hospitalization)
  Sender: FDA-Public Use
  Company Number: 8791

PATIENT
  Age: 24 Year
  Sex: Male

DRUGS (8)
  1. NOVANTRONE [Suspect]
     Indication: ACUTE LYMPHOCYTIC LEUKAEMIA
     Dosage: 12 MG DAILY
     Dates: start: 20040614, end: 20040614
  2. METHOTREXATE [Suspect]
     Indication: ACUTE LYMPHOCYTIC LEUKAEMIA
     Dosage: 12 MG FREQ IT
     Dates: start: 20020614
  3. VINCRISTINE [Suspect]
     Indication: ACUTE LYMPHOCYTIC LEUKAEMIA
     Dosage: 4 MG DAILY IV
     Route: 042
     Dates: start: 20020614, end: 20020614
  4. MARINOL [Concomitant]
  5. OXYCODONE HCL [Concomitant]
  6. OMEPRAZOLE [Concomitant]
  7. BACTRIM [Concomitant]
  8. ZOLOFT [Concomitant]

REACTIONS (2)
  - PAIN IN EXTREMITY [None]
  - PYREXIA [None]
